FAERS Safety Report 15836283 (Version 1)
Quarter: 2019Q1

REPORT INFORMATION
  Report Type: Spontaneous
  Country: US (occurrence: US)
  Receive Date: 20190117
  Receipt Date: 20190117
  Transmission Date: 20190417
  Serious: Yes (Other)
  Sender: FDA-Public Use
  Company Number: US-ADIENNEP-2018AD000619

PATIENT
  Age: 5 Year
  Sex: Female

DRUGS (5)
  1. TOPOTECAN [Suspect]
     Active Substance: TOPOTECAN HYDROCHLORIDE
     Indication: CHEMOTHERAPY
  2. THIOTEPA. [Suspect]
     Active Substance: THIOTEPA
     Indication: CHEMOTHERAPY
  3. VINORELBINE [Suspect]
     Active Substance: VINORELBINE\VINORELBINE TARTRATE
     Indication: CHEMOTHERAPY
  4. CLOFARABINE. [Suspect]
     Active Substance: CLOFARABINE
     Indication: CHEMOTHERAPY
  5. CYTARABINE. [Suspect]
     Active Substance: CYTARABINE
     Indication: CHEMOTHERAPY
     Route: 037

REACTIONS (7)
  - Adenovirus infection [Unknown]
  - Staphylococcal infection [Unknown]
  - Candida infection [Unknown]
  - Alpha haemolytic streptococcal infection [Unknown]
  - Cardio-respiratory arrest [Unknown]
  - Granulicatella infection [Unknown]
  - Endocarditis bacterial [Unknown]
